FAERS Safety Report 7206720-8 (Version None)
Quarter: 2011Q1

REPORT INFORMATION
  Report Type: 
  Country: None (occurrence: None)
  Receive Date: 20110103
  Receipt Date: 20101221
  Transmission Date: 20110831
  Serious: Yes (Other)
  Sender: FDA-Public Use
  Company Number: US-GENZYME-THYM-1002206

PATIENT
  Age: 32 Year
  Sex: Female

DRUGS (9)
  1. PREDNISONE [Concomitant]
     Indication: IMMUNOSUPPRESSION
     Dosage: 5 MG, QD
     Route: 048
  2. AZATHIOPRINE [Concomitant]
     Indication: IMMUNOSUPPRESSION
     Dosage: 125 MG, QD
     Route: 048
  3. CORTICOSTEROIDS [Concomitant]
     Indication: TRANSPLANT REJECTION
     Route: 065
  4. TACROLIMUS [Suspect]
     Dosage: 2.5 MG, BID
     Route: 048
  5. TACROLIMUS [Concomitant]
     Indication: IMMUNOSUPPRESSION
     Dosage: 2.5 MG, BID
     Route: 048
  6. TACROLIMUS [Suspect]
     Indication: OBLITERATIVE BRONCHIOLITIS
     Dosage: 5 MG/ML, QD
     Route: 055
  7. TACROLIMUS [Suspect]
     Dosage: 4 MG, QD
     Route: 065
  8. THYMOGLOBULIN [Suspect]
     Indication: LUNG TRANSPLANT REJECTION
  9. TACROLIMUS [Suspect]
     Dosage: 2 MG, BID
     Route: 048

REACTIONS (4)
  - OBLITERATIVE BRONCHIOLITIS [None]
  - HYPERTENSION [None]
  - NEUROPATHY PERIPHERAL [None]
  - DECREASED APPETITE [None]
